FAERS Safety Report 5239506-4 (Version None)
Quarter: 2007Q1

REPORT INFORMATION
  Report Type: 
  Country: None (occurrence: None)
  Receive Date: 20070216
  Receipt Date: 20070206
  Transmission Date: 20070707
  Serious: Yes (Other)
  Sender: FDA-Public Use
  Company Number: PHFR2006GB03386

PATIENT
  Age: 57 Year
  Sex: Male
  Weight: 90.5 kg

DRUGS (2)
  1. CLOZARIL [Suspect]
     Indication: SCHIZOPHRENIA
     Dosage: 725MG/DAY
     Route: 048
  2. CLOZARIL [Suspect]
     Dosage: 600MG/DAY
     Route: 048
     Dates: start: 20010723

REACTIONS (7)
  - BLOOD CALCIUM INCREASED [None]
  - BLOOD PARATHYROID HORMONE INCREASED [None]
  - HYPERPARATHYROIDISM [None]
  - NEUTROPENIA [None]
  - RENAL DISORDER [None]
  - RENAL IMPAIRMENT [None]
  - SALIVARY HYPERSECRETION [None]
